FAERS Safety Report 19433841 (Version 2)
Quarter: 2021Q3

REPORT INFORMATION
  Report Type: Spontaneous
  Country: JP (occurrence: JP)
  Receive Date: 20210618
  Receipt Date: 20210705
  Transmission Date: 20211014
  Serious: Yes (Hospitalization)
  Sender: FDA-Public Use
  Company Number: NVSJ2021JP009010

PATIENT
  Age: 62 Year
  Sex: Male

DRUGS (1)
  1. COSENTYX [Suspect]
     Active Substance: SECUKINUMAB
     Indication: PSORIASIS
     Dosage: 300 MG, QW
     Route: 058
     Dates: start: 20210212, end: 20210312

REACTIONS (4)
  - Bile duct stone [Unknown]
  - Hepatic steatosis [Unknown]
  - Adenomyosis [Unknown]
  - Gallbladder cancer [Recovered/Resolved]

NARRATIVE: CASE EVENT DATE: 20210404
